FAERS Safety Report 6188873-6 (Version None)
Quarter: 2009Q2

REPORT INFORMATION
  Report Type: 
  Country: None (occurrence: None)
  Receive Date: 20090513
  Receipt Date: 20090504
  Transmission Date: 20091009
  Serious: Yes (Other)
  Sender: FDA-Public Use
  Company Number: PHHY2009BR17290

PATIENT
  Age: 41 Year
  Sex: Male
  Weight: 90 kg

DRUGS (6)
  1. RITALIN LA [Suspect]
     Indication: ATTENTION DEFICIT/HYPERACTIVITY DISORDER
     Dosage: 20 MG, QD
     Route: 048
  2. RITALIN LA [Suspect]
     Dosage: 2 CAPSULES/DAY
     Route: 048
  3. RITALIN LA [Suspect]
     Dosage: 20 MG, QD
     Route: 048
     Dates: start: 20090502
  4. RITALIN LA [Suspect]
     Dosage: 20 MG, BID
     Dates: start: 20090504
  5. RITALIN [Suspect]
     Dosage: 10 MG, QD
     Route: 048
  6. DIVALPROEX SODIUM [Concomitant]
     Indication: BIPOLAR DISORDER
     Dosage: 500 MG, QD

REACTIONS (4)
  - AGGRESSION [None]
  - DRY MOUTH [None]
  - SOMNOLENCE [None]
  - TREMOR [None]
